FAERS Safety Report 14939395 (Version 2)
Quarter: 2019Q1

REPORT INFORMATION
  Report Type: Report from Study
  Country: US (occurrence: US)
  Receive Date: 20180525
  Receipt Date: 20190114
  Transmission Date: 20190417
  Serious: No
  Sender: FDA-Public Use
  Company Number: US-SA-2018SA138597

PATIENT
  Age: 73 Year
  Sex: Female

DRUGS (1)
  1. DUPILUMAB [Suspect]
     Active Substance: DUPILUMAB
     Indication: ECZEMA
     Dosage: 300 MG, QOW
     Route: 058
     Dates: start: 2017

REACTIONS (3)
  - Fatigue [Not Recovered/Not Resolved]
  - Oral herpes [Recovered/Resolved]
  - Eye pruritus [Not Recovered/Not Resolved]
